FAERS Safety Report 10304973 (Version 2)
Quarter: 2014Q3

REPORT INFORMATION
  Report Type: Spontaneous
  Country: US (occurrence: US)
  Receive Date: 20140715
  Receipt Date: 20140715
  Transmission Date: 20150326
  Serious: Yes (Hospitalization, Other)
  Sender: FDA-Public Use
  Company Number: US-009507513-2009SP023465

PATIENT
  Sex: Female
  Weight: 70.31 kg

DRUGS (1)
  1. NUVARING [Suspect]
     Active Substance: ETHINYL ESTRADIOL\ETONOGESTREL
     Indication: CONTRACEPTION
     Route: 067
     Dates: start: 20071203, end: 2008

REACTIONS (8)
  - Ileus [Unknown]
  - Pelvic inflammatory disease [Unknown]
  - Pulmonary embolism [Unknown]
  - Hepatic cyst [Unknown]
  - Cholelithiasis [Unknown]
  - Uterine leiomyoma [Unknown]
  - Ovarian cyst [Unknown]
  - Atelectasis [Unknown]

NARRATIVE: CASE EVENT DATE: 20081114
